FAERS Safety Report 22226204 (Version 1)
Quarter: 2023Q2

REPORT INFORMATION
  Report Type: Spontaneous
  Country: CN (occurrence: CN)
  Receive Date: 20230419
  Receipt Date: 20230419
  Transmission Date: 20230721
  Serious: Yes (Hospitalization)
  Sender: FDA-Public Use
  Company Number: CN-NOVOPROD-1051738

PATIENT
  Age: 28 Year
  Sex: Female

DRUGS (2)
  1. LEVEMIR [Suspect]
     Active Substance: INSULIN DETEMIR
     Indication: Hyperglycaemia
     Dosage: UNK
  2. NOVOLIN N [Suspect]
     Active Substance: INSULIN HUMAN
     Indication: Hyperglycaemia
     Dosage: UNK

REACTIONS (2)
  - Type 1 diabetes mellitus [Unknown]
  - Maternal exposure during pregnancy [Recovered/Resolved]
